FAERS Safety Report 18768399 (Version 2)
Quarter: 2021Q1

REPORT INFORMATION
  Report Type: Spontaneous
  Country: CA (occurrence: CA)
  Receive Date: 20210121
  Receipt Date: 20210219
  Transmission Date: 20210419
  Serious: Yes (Other)
  Sender: FDA-Public Use
  Company Number: CA-PFIZER INC-2021025502

PATIENT
  Age: 64 Year
  Sex: Female

DRUGS (3)
  1. DALACIN [Suspect]
     Active Substance: CLINDAMYCIN
     Dosage: UNK, EVERY OTHER DAY
  2. DALACIN [Suspect]
     Active Substance: CLINDAMYCIN
     Indication: VAGINAL INFECTION
     Dosage: UNK, ONE DOSE DAILY
  3. DALACIN [Suspect]
     Active Substance: CLINDAMYCIN
     Dosage: UNK, 2 TIMES A WEEK

REACTIONS (4)
  - Drug ineffective [Unknown]
  - Incorrect dosage administered [Unknown]
  - Inappropriate schedule of product administration [Unknown]
  - Device connection issue [Unknown]
